FAERS Safety Report 12602946 (Version 3)
Quarter: 2016Q3

REPORT INFORMATION
  Report Type: Report from Study
  Country: US (occurrence: US)
  Receive Date: 20160728
  Receipt Date: 20160829
  Transmission Date: 20161109
  Serious: Yes (Death, Hospitalization, Other)
  Sender: FDA-Public Use
  Company Number: PHEH2016US018678

PATIENT
  Age: 67 Year
  Sex: Male
  Weight: 70 kg

DRUGS (8)
  1. ARZERRA [Suspect]
     Active Substance: OFATUMUMAB
     Dosage: UNK, ONCE/SINGLE
     Route: 042
     Dates: start: 20160629
  2. BORTEZOMIB [Concomitant]
     Active Substance: BORTEZOMIB
     Indication: LYMPHOMA
     Dosage: UNK UNK, ONCE/SINGLE
     Route: 042
     Dates: start: 20160701
  3. CARBOPLATIN. [Concomitant]
     Active Substance: CARBOPLATIN
     Indication: LYMPHOMA
     Dosage: UNK UNK, ONCE/SINGLE
     Route: 042
     Dates: start: 20160702
  4. IFOSFAMIDE. [Concomitant]
     Active Substance: IFOSFAMIDE
     Indication: LYMPHOMA
     Dosage: UNK UNK, ONCE/SINGLE
     Route: 042
     Dates: start: 20150702
  5. ETOPOSIDE. [Concomitant]
     Active Substance: ETOPOSIDE
     Indication: LYMPHOMA
     Dosage: 3 DF, QD
     Route: 042
     Dates: start: 20160701, end: 20160703
  6. ARZERRA [Suspect]
     Active Substance: OFATUMUMAB
     Indication: LYMPHOMA
     Dosage: UNK UNK, QD
     Route: 065
     Dates: start: 20160304
  7. MESNA. [Concomitant]
     Active Substance: MESNA
     Indication: LYMPHOMA
     Dosage: UNK UNK, ONCE/SINGLE
     Route: 042
     Dates: start: 20160702
  8. DECADRON [Concomitant]
     Active Substance: DEXAMETHASONE
     Indication: LYMPHOMA
     Dosage: UNK UNK, QD
     Route: 042
     Dates: start: 20160701, end: 20160703

REACTIONS (10)
  - Lymphoma [Fatal]
  - Splenomegaly [Unknown]
  - Septic shock [Fatal]
  - Cardiac arrest [Fatal]
  - Acute kidney injury [Unknown]
  - Pyrexia [Unknown]
  - Fatigue [Unknown]
  - Thrombocytopenia [Unknown]
  - Diarrhoea [Unknown]
  - Malignant neoplasm progression [Fatal]

NARRATIVE: CASE EVENT DATE: 20160627
